FAERS Safety Report 5875417-9 (Version None)
Quarter: 2008Q3

REPORT INFORMATION
  Report Type: 
  Country: None (occurrence: None)
  Receive Date: 20080904
  Receipt Date: 20080820
  Transmission Date: 20090109
  Serious: Yes (Hospitalization)
  Sender: FDA-Public Use
  Company Number: 2008AL005398

PATIENT
  Age: 41 Year
  Sex: Female
  Weight: 88.905 kg

DRUGS (6)
  1. DIGOXIN [Suspect]
     Indication: CARDIAC FAILURE CONGESTIVE
     Dosage: 0.25MG, DAILY, PO
     Route: 048
     Dates: start: 20080201, end: 20080501
  2. DIGOXIN [Suspect]
     Indication: HEART RATE IRREGULAR
     Dosage: 0.25MG, DAILY, PO
     Route: 048
     Dates: start: 20080201, end: 20080501
  3. KLOR-CON [Concomitant]
  4. CERVEDILOL [Concomitant]
  5. FUROSEMIDE [Concomitant]
  6. QUINAPRIL [Concomitant]

REACTIONS (8)
  - DIARRHOEA [None]
  - DIZZINESS [None]
  - DYSPNOEA [None]
  - FEELING ABNORMAL [None]
  - FLATULENCE [None]
  - HYPOTENSION [None]
  - NAUSEA [None]
  - VOMITING [None]
